FAERS Safety Report 9652018 (Version 2)
Quarter: 2013Q4

REPORT INFORMATION
  Report Type: Report from Study
  Country: JP (occurrence: JP)
  Receive Date: 20131029
  Receipt Date: 20131118
  Transmission Date: 20140711
  Serious: Yes (Hospitalization, Other)
  Sender: FDA-Public Use
  Company Number: JP-TAKEDA-2013TJP002051

PATIENT
  Age: 83 Year
  Sex: Male

DRUGS (7)
  1. PIOGLITAZONE, GLIMEPIRIDE [Suspect]
     Indication: TYPE 2 DIABETES MELLITUS
     Dosage: 1 DF, QD
     Route: 048
     Dates: start: 20120428, end: 20120807
  2. PLAVIX [Suspect]
     Dosage: UNK
     Route: 048
  3. BAYASPIRIN [Suspect]
     Dosage: UNK
     Route: 048
  4. ECARD COMBINATION [Concomitant]
     Dosage: UNK
     Route: 048
  5. TAKEPRON [Concomitant]
     Dosage: UNK
     Route: 048
  6. ARICEPT D [Concomitant]
     Dosage: UNK
     Route: 048
  7. CADUET [Concomitant]
     Dosage: UNK
     Route: 048

REACTIONS (1)
  - Mallory-Weiss syndrome [Recovered/Resolved]
